FAERS Safety Report 4546374-2 (Version None)
Quarter: 2005Q1

REPORT INFORMATION
  Report Type: 
  Country: None (occurrence: None)
  Receive Date: 20050103
  Receipt Date: 20041220
  Transmission Date: 20050727
  Serious: Yes (Other)
  Sender: FDA-Public Use
  Company Number: 2004108319

PATIENT
  Age: 60 Year
  Sex: Male

DRUGS (2)
  1. NORVASC [Suspect]
     Indication: BLOOD PRESSURE INCREASED
     Dosage: 5 MG ( 1 IN 1 D), ORAL
     Route: 048
     Dates: start: 20041120, end: 20041129
  2. ACETYLSALYSTEINE (ACETYLCYSTEINE) [Concomitant]

REACTIONS (4)
  - ATRIOVENTRICULAR BLOCK SECOND DEGREE [None]
  - BRADYCARDIA [None]
  - EMPHYSEMA [None]
  - PNEUMOTHORAX [None]
